FAERS Safety Report 23513452 (Version 1)
Quarter: 2024Q1

REPORT INFORMATION
  Report Type: Spontaneous
  Country: CA (occurrence: CA)
  Receive Date: 20240212
  Receipt Date: 20240212
  Transmission Date: 20240410
  Serious: Yes (Other)
  Sender: FDA-Public Use
  Company Number: CA-VERTEX PHARMACEUTICALS-2024-001988

PATIENT
  Age: 17 Year
  Sex: Female
  Weight: 48 kg

DRUGS (5)
  1. TRIKAFTA [Suspect]
     Active Substance: ELEXACAFTOR\IVACAFTOR\TEZACAFTOR
     Indication: Cystic fibrosis
     Dosage: UNK FREQ
     Route: 048
  2. CREON [Concomitant]
     Active Substance: PANCRELIPASE AMYLASE\PANCRELIPASE LIPASE\PANCRELIPASE PROTEASE
  3. URSODIOL [Concomitant]
     Active Substance: URSODIOL
  4. DEXILANT [Concomitant]
     Active Substance: DEXLANSOPRAZOLE
  5. SINGULAIR [Concomitant]
     Active Substance: MONTELUKAST SODIUM

REACTIONS (10)
  - Syncope [Unknown]
  - Depressed level of consciousness [Unknown]
  - Lethargy [Unknown]
  - Migraine [Not Recovered/Not Resolved]
  - Dehydration [Unknown]
  - Amnesia [Recovered/Resolved]
  - Asthenia [Not Recovered/Not Resolved]
  - Tachycardia [Unknown]
  - Urinary tract infection [Not Recovered/Not Resolved]
  - Pharyngitis streptococcal [Not Recovered/Not Resolved]
